FAERS Safety Report 5217699-2 (Version None)
Quarter: 2007Q1

REPORT INFORMATION
  Report Type: 
  Country: None (occurrence: None)
  Receive Date: 20070124
  Receipt Date: 20070111
  Transmission Date: 20070707
  Serious: Yes (Other)
  Sender: FDA-Public Use
  Company Number: US-ELI_LILLY_AND_COMPANY-US200701002340

PATIENT
  Sex: Male

DRUGS (2)
  1. PROZAC [Suspect]
     Indication: BIPOLAR DISORDER
     Dosage: UNK, DAILY (1/D)
  2. WELLBUTRIN [Concomitant]
     Indication: BIPOLAR DISORDER
     Dosage: UNK, DAILY (1/D)

REACTIONS (1)
  - PHYSICAL ASSAULT [None]
